FAERS Safety Report 4680012-3 (Version None)
Quarter: 2005Q2

REPORT INFORMATION
  Report Type: 
  Country: None (occurrence: None)
  Receive Date: 20050531
  Receipt Date: 20050519
  Transmission Date: 20051028
  Serious: Yes (Other)
  Sender: FDA-Public Use
  Company Number: 2005070247

PATIENT
  Age: 60 Year
  Sex: Female

DRUGS (1)
  1. CELEBREX [Suspect]
     Indication: SHOULDER PAIN
     Dosage: ORAL
     Route: 048
     Dates: start: 20050408, end: 20050418

REACTIONS (2)
  - DRUG TOXICITY [None]
  - HEPATOCELLULAR DAMAGE [None]
